FAERS Safety Report 12653823 (Version 2)
Quarter: 2016Q3

REPORT INFORMATION
  Report Type: Spontaneous
  Country: GB (occurrence: GB)
  Receive Date: 20160816
  Receipt Date: 20160823
  Transmission Date: 20161109
  Serious: Yes (Other)
  Sender: FDA-Public Use
  Company Number: GB-ROCHE-1741389

PATIENT
  Sex: Female

DRUGS (3)
  1. ZOVIRAX [Concomitant]
     Active Substance: ACYCLOVIR
  2. HERCEPTIN [Suspect]
     Active Substance: TRASTUZUMAB
     Indication: PRODUCT USED FOR UNKNOWN INDICATION
     Route: 058
  3. ALENDRONIC ACID [Concomitant]
     Active Substance: ALENDRONIC ACID

REACTIONS (12)
  - Pain in extremity [Unknown]
  - Blister [Unknown]
  - Labyrinthitis [Unknown]
  - Back pain [Unknown]
  - Axillary pain [Unknown]
  - Pain [Unknown]
  - Osteoporosis [Unknown]
  - Herpes zoster [Unknown]
  - Rash [Recovering/Resolving]
  - Musculoskeletal chest pain [Unknown]
  - Fatigue [Not Recovered/Not Resolved]
  - Procedural pain [Unknown]

NARRATIVE: CASE EVENT DATE: 20160614
